FAERS Safety Report 22644498 (Version 1)
Quarter: 2023Q2

REPORT INFORMATION
  Report Type: Spontaneous
  Country: US (occurrence: US)
  Receive Date: 20230627
  Receipt Date: 20230627
  Transmission Date: 20230722
  Serious: No
  Sender: FDA-Public Use
  Company Number: US-ABBVIE-5305843

PATIENT
  Age: 63 Year
  Sex: Female
  Weight: 71 kg

DRUGS (2)
  1. BOTOX [Suspect]
     Active Substance: ONABOTULINUMTOXINA
     Indication: Dystonia
     Dosage: TIME INTERVAL: AS NECESSARY: NECK
     Route: 030
     Dates: start: 202306, end: 202306
  2. CLONAZEPAM [Concomitant]
     Active Substance: CLONAZEPAM
     Indication: Muscle spasms

REACTIONS (3)
  - Neck pain [Unknown]
  - Arthralgia [Unknown]
  - Joint range of motion decreased [Unknown]

NARRATIVE: CASE EVENT DATE: 20230601
